FAERS Safety Report 15593955 (Version 1)
Quarter: 2018Q4

REPORT INFORMATION
  Report Type: Spontaneous
  Country: US (occurrence: US)
  Receive Date: 20181106
  Receipt Date: 20181106
  Transmission Date: 20190205
  Serious: No
  Sender: FDA-Public Use
  Company Number: US-PFIZER INC-2018455901

PATIENT
  Age: 61 Year

DRUGS (1)
  1. NIFEDIPINE. [Suspect]
     Active Substance: NIFEDIPINE
     Dosage: UNK

REACTIONS (6)
  - Nervousness [Unknown]
  - Nausea [Unknown]
  - Drug intolerance [Unknown]
  - Abdominal pain upper [Unknown]
  - Muscular weakness [Unknown]
  - Headache [Unknown]
